FAERS Safety Report 9254204 (Version 1)
Quarter: 2013Q2

REPORT INFORMATION
  Report Type: Spontaneous
  Country: US (occurrence: None)
  Receive Date: 20130422
  Receipt Date: 20130422
  Transmission Date: 20140414
  Serious: No
  Sender: FDA-Public Use
  Company Number: None

PATIENT
  Age: 49 Year
  Sex: Male
  Weight: 71.8 kg

DRUGS (1)
  1. HALOPERIDOL [Suspect]
     Indication: AGITATION
     Dosage: 1 ML  PRN  IM
     Route: 030
     Dates: start: 20130115, end: 20130116

REACTIONS (4)
  - Hypoaesthesia [None]
  - Dysarthria [None]
  - Muscle twitching [None]
  - Muscle twitching [None]
